FAERS Safety Report 14162248 (Version 1)
Quarter: 2017Q4

REPORT INFORMATION
  Report Type: Report from Study
  Country: US (occurrence: US)
  Receive Date: 20171106
  Receipt Date: 20171106
  Transmission Date: 20180321
  Serious: Yes (Other)
  Sender: FDA-Public Use
  Company Number: US-UCBSA-2017043586

PATIENT
  Sex: Female

DRUGS (2)
  1. KEPPRA [Suspect]
     Active Substance: LEVETIRACETAM
     Indication: SEIZURE
     Dosage: 500 MG, 2X/DAY (BID)
  2. KEPPRA [Suspect]
     Active Substance: LEVETIRACETAM
     Dosage: 3000 MG, 2X/DAY (BID)

REACTIONS (5)
  - Generalised tonic-clonic seizure [Unknown]
  - Overdose [Unknown]
  - Off label use [Unknown]
  - Insomnia [Unknown]
  - Stress [Unknown]

NARRATIVE: CASE EVENT DATE: 201512
